FAERS Safety Report 21141719 (Version 1)
Quarter: 2022Q3

REPORT INFORMATION
  Report Type: Spontaneous
  Country: CN (occurrence: CN)
  Receive Date: 20220728
  Receipt Date: 20220728
  Transmission Date: 20221027
  Serious: Yes (Hospitalization)
  Sender: FDA-Public Use
  Company Number: CN-GLAXOSMITHKLINE-CNCH2022APC026226

PATIENT

DRUGS (7)
  1. DICLOFENAC SODIUM [Suspect]
     Active Substance: DICLOFENAC SODIUM
     Indication: Pain
     Dosage: 75 MG, QD
     Route: 048
     Dates: start: 20220630, end: 20220713
  2. HERBALS [Suspect]
     Active Substance: HERBALS
     Indication: Bowel movement irregularity
     Dosage: 20 ML, TID
     Route: 048
     Dates: start: 20220516, end: 20220722
  3. SILIBININ [Suspect]
     Active Substance: SILIBININ
     Indication: Liver disorder
     Dosage: 105 MG, TID
     Route: 048
     Dates: start: 20220520, end: 20220722
  4. METHYLCOBALAMIN [Suspect]
     Active Substance: METHYLCOBALAMIN
     Indication: Product used for unknown indication
     Dosage: 0.5 MG, TID
     Route: 048
     Dates: start: 20220520, end: 20220718
  5. EPERISONE HYDROCHLORIDE [Suspect]
     Active Substance: EPERISONE HYDROCHLORIDE
     Indication: Muscle spasms
     Dosage: 50 MG, QD
     Route: 048
     Dates: start: 20220520, end: 20220718
  6. PREDNISONE ACETATE [Suspect]
     Active Substance: PREDNISONE ACETATE
     Indication: Rheumatoid arthritis
     Dosage: 5 MG, QD
     Route: 048
     Dates: start: 20220614, end: 20220628
  7. HERBALS [Suspect]
     Active Substance: HERBALS
     Indication: Osteoporosis
     Dosage: 5 G, TID
     Route: 048
     Dates: start: 20220516, end: 20220520

REACTIONS (1)
  - Hepatic function abnormal [Recovering/Resolving]

NARRATIVE: CASE EVENT DATE: 20220713
